FAERS Safety Report 15662424 (Version 1)
Quarter: 2018Q4

REPORT INFORMATION
  Report Type: Spontaneous
  Country: US (occurrence: US)
  Receive Date: 20181116
  Receipt Date: 20181116
  Transmission Date: 20190205
  Serious: Yes (Hospitalization)
  Sender: FDA-Public Use
  Company Number: None

PATIENT
  Age: 30 Year
  Sex: Male
  Weight: 77.1 kg

DRUGS (1)
  1. ADALIMUMAB [Suspect]
     Active Substance: ADALIMUMAB

REACTIONS (6)
  - Abdominal discomfort [None]
  - Abdominal pain lower [None]
  - Small intestinal obstruction [None]
  - Vomiting [None]
  - Nausea [None]
  - Crohn^s disease [None]

NARRATIVE: CASE EVENT DATE: 20180401
